FAERS Safety Report 8900792 (Version 1)
Quarter: 2012Q4

REPORT INFORMATION
  Report Type: 
  Country: CA (occurrence: CA)
  Receive Date: 20121109
  Receipt Date: 20121109
  Transmission Date: 20130627
  Serious: Yes (Other)
  Sender: FDA-Public Use
  Company Number: PHHY2008CA01939

PATIENT
  Age: 75 Year
  Sex: Female

DRUGS (1)
  1. SANDOSTATINE LAR [Suspect]
     Indication: NEUROENDOCRINE TUMOUR
     Dosage: 30 mg, QMO
     Route: 030
     Dates: start: 20060911

REACTIONS (4)
  - Upper limb fracture [Unknown]
  - Musculoskeletal stiffness [Unknown]
  - Rash macular [Unknown]
  - Diarrhoea [Unknown]
